FAERS Safety Report 5735872-1 (Version None)
Quarter: 2008Q2

REPORT INFORMATION
  Report Type: 
  Country: None (occurrence: None)
  Receive Date: 20080513
  Receipt Date: 20080506
  Transmission Date: 20081010
  Serious: Yes (Hospitalization)
  Sender: FDA-Public Use
  Company Number: FR-ELI_LILLY_AND_COMPANY-FR200805001903

PATIENT
  Age: 81 Year
  Sex: Male

DRUGS (3)
  1. FORTEO [Suspect]
     Indication: OSTEOPOROSIS
     Dosage: 20 UG, DAILY (1/D)
     Route: 058
     Dates: start: 20080402, end: 20080420
  2. PLAVIX [Concomitant]
     Dosage: 75 MG, DAILY (1/D)
  3. FORADIL [Concomitant]
     Indication: ASTHMA

REACTIONS (3)
  - AORTIC ANEURYSM [None]
  - CORONARY ARTERY DISEASE [None]
  - SYNCOPE [None]
